FAERS Safety Report 6635445-2 (Version None)
Quarter: 2010Q1

REPORT INFORMATION
  Report Type: 
  Country: None (occurrence: None)
  Receive Date: 20100315
  Receipt Date: 20090727
  Transmission Date: 20100710
  Serious: No
  Sender: FDA-Public Use
  Company Number: US-ABBOTT-09P-163-0588180-00

PATIENT
  Age: 2 Year

DRUGS (2)
  1. DEPAKOTE [Suspect]
     Indication: MYOCLONIC EPILEPSY
  2. DEPAKOTE [Suspect]

REACTIONS (5)
  - FALL [None]
  - LETHARGY [None]
  - LIVER FUNCTION TEST ABNORMAL [None]
  - PYREXIA [None]
  - RASH [None]
